FAERS Safety Report 23857897 (Version 3)
Quarter: 2025Q1

REPORT INFORMATION
  Report Type: Spontaneous
  Country: CZ (occurrence: CZ)
  Receive Date: 20240515
  Receipt Date: 20250225
  Transmission Date: 20250408
  Serious: Yes (Hospitalization, Other)
  Sender: AUROBINDO
  Company Number: CZ-MYLANLABS-2024M1037841

PATIENT
  Age: 39 Year
  Sex: Male

DRUGS (15)
  1. PREGABALIN [Suspect]
     Active Substance: PREGABALIN
     Indication: Personality disorder
     Route: 065
  2. PREGABALIN [Suspect]
     Active Substance: PREGABALIN
     Indication: Generalised anxiety disorder
     Dosage: 600 MILLIGRAM, ONCE A DAY  (IN TWO DIVIDED DOSES, ABOUT 20 MONTHS)
     Route: 065
  3. PREGABALIN [Suspect]
     Active Substance: PREGABALIN
     Dosage: 2400 MILLIGRAM, ONCE A DAY (2400 MILLIGRAM, QD (MORNING/ALSO BY SNIFFING))
     Route: 045
     Dates: start: 202301
  4. PREGABALIN [Suspect]
     Active Substance: PREGABALIN
     Dosage: 1200 MILLIGRAM, ONCE A DAY (600 MILLIGRAM, BID ( PER  DAY IN TWO DIVIDED DOSES))
     Route: 065
     Dates: start: 202301
  5. CLONAZEPAM [Concomitant]
     Active Substance: CLONAZEPAM
     Indication: Generalised anxiety disorder
     Route: 065
  6. CLONAZEPAM [Concomitant]
     Active Substance: CLONAZEPAM
     Indication: Impulsive behaviour
  7. CLONAZEPAM [Concomitant]
     Active Substance: CLONAZEPAM
     Indication: Antisocial behaviour
  8. CLONAZEPAM [Concomitant]
     Active Substance: CLONAZEPAM
     Indication: Narcissistic personality disorder
  9. TRAMADOL [Concomitant]
     Active Substance: TRAMADOL
     Indication: Generalised anxiety disorder
     Route: 065
     Dates: start: 2021
  10. TRAMADOL [Concomitant]
     Active Substance: TRAMADOL
     Indication: Impulsive behaviour
  11. TRAMADOL [Concomitant]
     Active Substance: TRAMADOL
     Indication: Antisocial behaviour
  12. TRAMADOL [Concomitant]
     Active Substance: TRAMADOL
     Indication: Narcissistic personality disorder
  13. AMPHETAMINE [Concomitant]
     Active Substance: AMPHETAMINE
     Indication: Impulsive behaviour
     Route: 065
  14. AMPHETAMINE [Concomitant]
     Active Substance: AMPHETAMINE
     Indication: Antisocial behaviour
  15. AMPHETAMINE [Concomitant]
     Active Substance: AMPHETAMINE
     Indication: Narcissistic personality disorder

REACTIONS (18)
  - Drug dependence [Not Recovered/Not Resolved]
  - Drug abuse [Unknown]
  - Tension [Not Recovered/Not Resolved]
  - Hyperhidrosis [Not Recovered/Not Resolved]
  - Insomnia [Not Recovered/Not Resolved]
  - Conjunctival hyperaemia [Not Recovered/Not Resolved]
  - Anxiety [Not Recovered/Not Resolved]
  - Aggression [Unknown]
  - Withdrawal syndrome [Not Recovered/Not Resolved]
  - Intentional overdose [Unknown]
  - Incorrect route of product administration [Unknown]
  - Intentional product misuse [Not Recovered/Not Resolved]
  - Substance dependence [Unknown]
  - Psychiatric decompensation [Recovered/Resolved]
  - Overdose [Not Recovered/Not Resolved]
  - Product use issue [Unknown]
  - Off label use [Unknown]
  - Intentional product use issue [Recovered/Resolved]
